FAERS Safety Report 7587198-1 (Version None)
Quarter: 2011Q3

REPORT INFORMATION
  Report Type: 
  Country: None (occurrence: None)
  Receive Date: 20110701
  Receipt Date: 20110620
  Transmission Date: 20111222
  Serious: Yes (Hospitalization)
  Sender: FDA-Public Use
  Company Number: HU-ELI_LILLY_AND_COMPANY-HU201105000269

PATIENT
  Sex: Male
  Weight: 87 kg

DRUGS (16)
  1. GEMCITABINE HYDROCHLORIDE [Suspect]
     Indication: NON-SMALL CELL LUNG CANCER
     Dosage: 2500 MG, OTHER
     Dates: start: 20110223, end: 20110328
  2. ZOFRAN [Concomitant]
     Dosage: UNK
     Dates: start: 20110328, end: 20110328
  3. TRAMADOL HCL [Concomitant]
     Indication: ARTHRALGIA
     Dosage: UNK
     Dates: start: 20101224
  4. EMETRON [Concomitant]
     Dosage: UNK
     Dates: start: 20110329, end: 20110402
  5. CLOBETASOL PROPIONATE [Concomitant]
     Indication: DERMATITIS ACNEIFORM
     Dosage: UNK
     Dates: start: 20110316, end: 20110328
  6. CISPLATIN [Suspect]
     Indication: NON-SMALL CELL LUNG CANCER
     Dosage: 120 MG, OTHER
     Dates: start: 20110223, end: 20110316
  7. ZOFRAN [Concomitant]
     Dosage: UNK
     Dates: start: 20110316, end: 20110316
  8. SOLU-MEDROL [Concomitant]
     Dosage: UNK
     Dates: start: 20110316, end: 20110316
  9. EMETRON [Concomitant]
     Indication: ANTIEMETIC SUPPORTIVE CARE
     Dosage: UNK
     Dates: start: 20110224, end: 20110228
  10. SOLU-MEDROL [Concomitant]
     Indication: ANTIEMETIC SUPPORTIVE CARE
     Dosage: UNK
     Dates: start: 20110303, end: 20110303
  11. ZOFRAN [Concomitant]
     Indication: ANTIEMETIC SUPPORTIVE CARE
     Dosage: UNK
     Dates: start: 20110223, end: 20110223
  12. SODIUM CHLORIDE [Concomitant]
     Indication: PROPHYLAXIS
     Dosage: UNK
     Dates: start: 20110223, end: 20110223
  13. MANNISOL B [Concomitant]
     Indication: PROPHYLAXIS
     Dosage: UNK
     Dates: start: 20110223, end: 20110223
  14. NECITUMUMAB (11F8) (LY3012211) [Suspect]
     Indication: NON-SMALL CELL LUNG CANCER
     Dosage: 800 MG, UNK
     Dates: start: 20110223, end: 20110328
  15. EMETRON [Concomitant]
     Dosage: UNK
     Dates: start: 20110317, end: 20110321
  16. SOLU-MEDROL [Concomitant]
     Dosage: UNK
     Dates: start: 20110328, end: 20110328

REACTIONS (1)
  - THROMBOSIS [None]
